FAERS Safety Report 12584153 (Version 1)
Quarter: 2016Q3

REPORT INFORMATION
  Report Type: Report from Study
  Country: US (occurrence: US)
  Receive Date: 20160722
  Receipt Date: 20160722
  Transmission Date: 20161109
  Serious: Yes (Other)
  Sender: FDA-Public Use
  Company Number: US-ABBVIE-16K-163-1677545-00

PATIENT
  Age: 15 Year
  Sex: Male

DRUGS (1)
  1. HUMIRA [Suspect]
     Active Substance: ADALIMUMAB
     Indication: CROHN^S DISEASE
     Dosage: DAY ONE
     Route: 058
     Dates: start: 20160714, end: 20160714

REACTIONS (10)
  - Appetite disorder [Unknown]
  - Activities of daily living impaired [Unknown]
  - Abdominal pain upper [Unknown]
  - Haematochezia [Unknown]
  - Abnormal faeces [Not Recovered/Not Resolved]
  - Weight decreased [Unknown]
  - Mouth ulceration [Unknown]
  - Decreased appetite [Unknown]
  - Fear [Unknown]
  - Vomiting [Unknown]

NARRATIVE: CASE EVENT DATE: 201607
